FAERS Safety Report 7144881-X (Version None)
Quarter: 2010Q4

REPORT INFORMATION
  Report Type: 
  Country: None (occurrence: None)
  Receive Date: 20101123
  Receipt Date: 20091119
  Transmission Date: 20110411
  Serious: Yes (Other)
  Sender: FDA-Public Use
  Company Number: TRP_05834_2008

PATIENT
  Sex: Male
  Weight: 69.8539 kg

DRUGS (6)
  1. INFERGEN [Suspect]
     Indication: HEPATITIS C
     Dosage: (15 UG QD SUBCUTANEOUS)
     Route: 058
     Dates: start: 20080619, end: 20080715
  2. CRESTOR [Concomitant]
  3. POTASSIUM [Concomitant]
  4. ASPIRIN [Concomitant]
  5. NEXIUM [Concomitant]
  6. HYDROCHLOROTHIAZIDE [Concomitant]

REACTIONS (3)
  - ASTHENIA [None]
  - FATIGUE [None]
  - PANCREATITIS [None]
